FAERS Safety Report 21728746 (Version 1)
Quarter: 2022Q4

REPORT INFORMATION
  Report Type: Spontaneous
  Country: TW (occurrence: TW)
  Receive Date: 20221214
  Receipt Date: 20221214
  Transmission Date: 20230112
  Serious: Yes (Other)
  Sender: FDA-Public Use
  Company Number: TW-MYLANLABS-2022M1137623

PATIENT
  Sex: Male

DRUGS (1)
  1. VIAGRA [Suspect]
     Active Substance: SILDENAFIL CITRATE
     Indication: Product used for unknown indication
     Dosage: 70-75 MG FRAGMENT TABLET FOR USE, PER TIME
     Route: 065

REACTIONS (2)
  - Glaucoma [Unknown]
  - Off label use [Unknown]
